FAERS Safety Report 13335379 (Version 1)
Quarter: 2017Q1

REPORT INFORMATION
  Report Type: Spontaneous
  Country: US (occurrence: US)
  Receive Date: 20170314
  Receipt Date: 20170314
  Transmission Date: 20170428
  Serious: No
  Sender: FDA-Public Use
  Company Number: US-GALDERMA-US16007804

PATIENT
  Age: 60 Year
  Sex: Female

DRUGS (2)
  1. ENBREL [Concomitant]
     Active Substance: ETANERCEPT
     Indication: RHEUMATOID ARTHRITIS
     Route: 058
  2. TRI-LUMA [Suspect]
     Active Substance: FLUOCINOLONE ACETONIDE\HYDROQUINONE\TRETINOIN
     Indication: PIGMENTATION DISORDER
     Route: 061
     Dates: start: 201610

REACTIONS (5)
  - Intentional product misuse [Recovered/Resolved]
  - Erythema [Recovered/Resolved]
  - Drug ineffective [Recovered/Resolved]
  - Burning sensation [Recovered/Resolved]
  - Blister [Recovered/Resolved]

NARRATIVE: CASE EVENT DATE: 201610
